FAERS Safety Report 13114449 (Version 1)
Quarter: 2017Q1

REPORT INFORMATION
  Report Type: Spontaneous
  Country: US (occurrence: US)
  Receive Date: 20170113
  Receipt Date: 20170113
  Transmission Date: 20170428
  Serious: Yes (Hospitalization, Other)
  Sender: FDA-Public Use
  Company Number: US-BAYER-2017-002956

PATIENT
  Age: 68 Year
  Sex: Male
  Weight: 81 kg

DRUGS (2)
  1. ALKA-SELTZER PLUS SEVERE SINUS CONGESTION AND COUGH [Suspect]
     Active Substance: ACETAMINOPHEN\DEXTROMETHORPHAN HYDROBROMIDE\PHENYLEPHRINE HYDROCHLORIDE
     Indication: HYPERSENSITIVITY
     Dosage: 1 DF, Q3HR; (TOOK PRODUCT AT 9 AM, 12 PM, 3 PM AND 6 PM)
     Route: 048
     Dates: start: 20170103, end: 20170103
  2. ALKA-SELTZER PLUS SEVERE SINUS CONGESTION AND COUGH [Suspect]
     Active Substance: ACETAMINOPHEN\DEXTROMETHORPHAN HYDROBROMIDE\PHENYLEPHRINE HYDROCHLORIDE
     Indication: NASOPHARYNGITIS

REACTIONS (6)
  - Cerebrovascular accident [None]
  - Product use issue [Unknown]
  - Head discomfort [Recovering/Resolving]
  - Blood pressure increased [Not Recovered/Not Resolved]
  - Headache [Recovering/Resolving]
  - Malaise [None]

NARRATIVE: CASE EVENT DATE: 20170103
